FAERS Safety Report 9495325 (Version 4)
Quarter: 2015Q2

REPORT INFORMATION
  Report Type: Spontaneous
  Country: CA (occurrence: CA)
  Receive Date: 20130903
  Receipt Date: 20150416
  Transmission Date: 20150821
  Serious: Yes (Hospitalization, Other)
  Sender: FDA-Public Use
  Company Number: CA-GLAXOSMITHKLINE-A1038787A

PATIENT
  Age: 46 Year
  Sex: Female
  Weight: 86 kg

DRUGS (11)
  1. REACTINE (CETIRIZINE HYDROCHLORIDE) [Concomitant]
     Active Substance: CETIRIZINE HYDROCHLORIDE
  2. GLUCOSAMINE [Concomitant]
     Active Substance: GLUCOSAMINE
  3. APIDRA [Concomitant]
     Active Substance: INSULIN GLULISINE
  4. ADVAIR DISKUS [Suspect]
     Active Substance: FLUTICASONE PROPIONATE\SALMETEROL XINAFOATE
     Indication: ASTHMA
     Dosage: 50 MCG SALMETEROL (AS THE XINAFOATE SALT) AND 500 MCG FLUTICASONE PROPIONATE
     Route: 055
     Dates: start: 2011, end: 201503
  5. EBIXA [Concomitant]
     Active Substance: MEMANTINE HYDROCHLORIDE
  6. NOVO-CLONIDINE [Concomitant]
  7. LANTUS [Concomitant]
     Active Substance: INSULIN GLARGINE
  8. ADVAIR DISKUS [Suspect]
     Active Substance: FLUTICASONE PROPIONATE\SALMETEROL XINAFOATE
     Dosage: 500 ?G, UNK
     Dates: start: 201503
  9. SINGULAIR [Concomitant]
     Active Substance: MONTELUKAST SODIUM
  10. SPIRIVA [Concomitant]
     Active Substance: TIOTROPIUM BROMIDE MONOHYDRATE
  11. VITAMIN D [Concomitant]
     Active Substance: CHOLECALCIFEROL

REACTIONS (7)
  - Lower limb fracture [Recovered/Resolved]
  - Inappropriate schedule of drug administration [Recovered/Resolved]
  - Wheezing [Recovered/Resolved]
  - Pneumonia [Recovering/Resolving]
  - Fall [Recovered/Resolved]
  - Drug dose omission [Unknown]
  - Cough [Recovered/Resolved]

NARRATIVE: CASE EVENT DATE: 201302
